FAERS Safety Report 7588395-1 (Version None)
Quarter: 2011Q2

REPORT INFORMATION
  Report Type: 
  Country: None (occurrence: None)
  Receive Date: 20110627
  Receipt Date: 20110613
  Transmission Date: 20111010
  Serious: Yes (Other)
  Sender: FDA-Public Use
  Company Number: 2011-1801

PATIENT
  Age: 46 Year
  Sex: Female
  Weight: 97 kg

DRUGS (3)
  1. ZOLOFT [Concomitant]
  2. ZYRTEC [Concomitant]
  3. SOMATULINE DEPOT [Suspect]
     Indication: ACROMEGALY
     Dosage: 60 MG EVERY 28 DAYS (60 MG, 1 IN 4 WK), SUBCUTANEOUS
     Route: 058
     Dates: start: 20100928, end: 20110227

REACTIONS (1)
  - SECRETORY ADENOMA OF PITUITARY [None]
